FAERS Safety Report 11067754 (Version 1)
Quarter: 2015Q2

REPORT INFORMATION
  Report Type: Spontaneous
  Country: SG (occurrence: SG)
  Receive Date: 20150427
  Receipt Date: 20150427
  Transmission Date: 20150821
  Serious: Yes (Other)
  Sender: FDA-Public Use
  Company Number: SG-BAYER-2015-140857

PATIENT
  Sex: Female

DRUGS (1)
  1. MIRENA [Suspect]
     Active Substance: LEVONORGESTREL
     Indication: HORMONE REPLACEMENT THERAPY
     Dosage: 20 MCG/24HR, CONT
     Route: 015

REACTIONS (2)
  - Product use issue [None]
  - Rectal cancer [None]
